FAERS Safety Report 26091966 (Version 1)
Quarter: 2025Q4

REPORT INFORMATION
  Report Type: Spontaneous
  Country: JP (occurrence: JP)
  Receive Date: 20251126
  Receipt Date: 20251126
  Transmission Date: 20260118
  Serious: Yes (Death)
  Sender: MERCK SHARP & DOHME LLC
  Company Number: JP-009507513-2352971

PATIENT
  Sex: Male

DRUGS (4)
  1. KEYTRUDA [Suspect]
     Active Substance: PEMBROLIZUMAB
     Indication: Gastric cancer
     Dosage: 1 COURSE
     Route: 041
  2. TS-1 [Concomitant]
     Active Substance: GIMERACIL\OTERACIL POTASSIUM\TEGAFUR
  3. HERCEPTIN [Concomitant]
     Active Substance: TRASTUZUMAB
  4. OXALIPLATIN [Concomitant]
     Active Substance: OXALIPLATIN

REACTIONS (1)
  - Malignant neoplasm progression [Fatal]
